FAERS Safety Report 24584419 (Version 1)
Quarter: 2024Q4

REPORT INFORMATION
  Report Type: Spontaneous
  Country: BR (occurrence: BR)
  Receive Date: 20241106
  Receipt Date: 20241106
  Transmission Date: 20250114
  Serious: Yes (Other)
  Sender: PFIZER
  Company Number: BR-PFIZER INC-PV202400143700

PATIENT
  Age: 23 Year
  Sex: Female

DRUGS (2)
  1. CIBINQO [Suspect]
     Active Substance: ABROCITINIB
     Dosage: 200 MG
     Route: 048
  2. CIBINQO [Suspect]
     Active Substance: ABROCITINIB
     Dosage: 100 MG
     Route: 048

REACTIONS (1)
  - Neutropenia [Recovering/Resolving]
